FAERS Safety Report 11545112 (Version 1)
Quarter: 2015Q3

REPORT INFORMATION
  Report Type: Spontaneous
  Country: IT (occurrence: IT)
  Receive Date: 20150924
  Receipt Date: 20150924
  Transmission Date: 20151125
  Serious: Yes (Other)
  Sender: FDA-Public Use
  Company Number: IT-ROCHE-1637934

PATIENT
  Age: 48 Year
  Sex: Female

DRUGS (2)
  1. HERCEPTIN [Suspect]
     Active Substance: TRASTUZUMAB
     Indication: BREAST CANCER
     Dosage: 150 MG POWDER FOR CONCENTRATE FOR SOLUTION FOR INTRAVENOUS INFUSION 1 VAIL FOR INTRAVENOUS USE
     Route: 042
     Dates: start: 20141106, end: 20150825
  2. FARGANESSE [Concomitant]
     Indication: PREMEDICATION
     Route: 030
     Dates: start: 20141106, end: 20150825

REACTIONS (2)
  - Aortic valve incompetence [Unknown]
  - Mitral valve incompetence [Unknown]

NARRATIVE: CASE EVENT DATE: 20150921
